FAERS Safety Report 24532652 (Version 1)
Quarter: 2024Q4

REPORT INFORMATION
  Report Type: Spontaneous
  Country: SE (occurrence: SE)
  Receive Date: 20241022
  Receipt Date: 20241022
  Transmission Date: 20250115
  Serious: Yes (Other)
  Sender: RANBAXY
  Company Number: SE-SEMPA-2024-006105

PATIENT
  Sex: Male

DRUGS (1)
  1. ATORVASTATIN [Suspect]
     Active Substance: ATORVASTATIN
     Indication: Blood cholesterol
     Dosage: 1 TAB DAILY
     Route: 048

REACTIONS (2)
  - Urine odour abnormal [Recovered/Resolved]
  - Product quality issue [Recovered/Resolved]
